FAERS Safety Report 6234648-9 (Version None)
Quarter: 2009Q2

REPORT INFORMATION
  Report Type: 
  Country: None (occurrence: None)
  Receive Date: 20090616
  Receipt Date: 20090616
  Transmission Date: 20091009
  Serious: Yes (Other)
  Sender: FDA-Public Use
  Company Number: None

PATIENT
  Sex: Male
  Weight: 92.9874 kg

DRUGS (1)
  1. NEULASTA [Suspect]

REACTIONS (4)
  - BONE PAIN [None]
  - DIARRHOEA [None]
  - MYALGIA [None]
  - PAIN OF SKIN [None]
